FAERS Safety Report 18249303 (Version 1)
Quarter: 2020Q3

REPORT INFORMATION
  Report Type: Spontaneous
  Country: AR (occurrence: AR)
  Receive Date: 20200909
  Receipt Date: 20200909
  Transmission Date: 20201103
  Serious: Yes (Death, Hospitalization, Other)
  Sender: FDA-Public Use
  Company Number: AR-UNITED THERAPEUTICS-UNT-2020-013391

PATIENT
  Age: 55 Year
  Sex: Male

DRUGS (1)
  1. REMODULIN [Suspect]
     Active Substance: TREPROSTINIL
     Indication: PULMONARY HYPERTENSION
     Dosage: UNK, CONTINUING
     Route: 058
     Dates: start: 20180601, end: 20200902

REACTIONS (4)
  - Systemic infection [Fatal]
  - Septic shock [Fatal]
  - Device related infection [Fatal]
  - Dialysis related complication [Fatal]

NARRATIVE: CASE EVENT DATE: 20200831
